FAERS Safety Report 23062711 (Version 2)
Quarter: 2023Q4

REPORT INFORMATION
  Report Type: Spontaneous
  Country: JP (occurrence: JP)
  Receive Date: 20231013
  Receipt Date: 20231031
  Transmission Date: 20240109
  Serious: Yes (Death, Other)
  Sender: FDA-Public Use
  Company Number: JP-BRISTOL-MYERS SQUIBB COMPANY-2023-145364

PATIENT
  Age: 53 Year
  Sex: Male

DRUGS (4)
  1. POMALYST [Suspect]
     Active Substance: POMALIDOMIDE
     Indication: Plasma cell myeloma
     Dosage: DPD THERAPY (DARATUMUMAB/POMALYST/LENADEX)
     Dates: start: 202307, end: 202307
  2. POMALYST [Suspect]
     Active Substance: POMALIDOMIDE
     Dosage: ISAPD THERAPY (ISATUXIMAB/POMALYST/LENADEX)
     Dates: start: 202308, end: 202309
  3. LENADEX [Suspect]
     Active Substance: DEXAMETHASONE ACETATE
     Indication: Plasma cell myeloma
     Dosage: ISAPD THERAPY (ISATUXIMAB/POMALYST/LENADEX)
     Dates: start: 202308, end: 202309
  4. ISATUXIMAB [Suspect]
     Active Substance: ISATUXIMAB
     Indication: Plasma cell myeloma
     Dosage: ISAPD THERAPY (ISATUXIMAB/POMALYST/LENADEX)
     Dates: start: 202308, end: 202309

REACTIONS (1)
  - Death [Fatal]

NARRATIVE: CASE EVENT DATE: 20230901
